FAERS Safety Report 14789006 (Version 1)
Quarter: 2018Q2

REPORT INFORMATION
  Report Type: Spontaneous
  Country: US (occurrence: US)
  Receive Date: 20180423
  Receipt Date: 20180423
  Transmission Date: 20180711
  Serious: No
  Sender: FDA-Public Use
  Company Number: US-BAYER-2018-069013

PATIENT
  Age: 72 Year
  Sex: Male
  Weight: 77.1 kg

DRUGS (1)
  1. ALEVE [Suspect]
     Active Substance: NAPROXEN SODIUM
     Indication: MIGRAINE WITH AURA
     Dosage: 1 DF, UNK
     Route: 048

REACTIONS (5)
  - Off label use [Unknown]
  - Product use in unapproved indication [Unknown]
  - Drug administration error [None]
  - Expired product administered [Unknown]
  - Drug ineffective for unapproved indication [None]
